FAERS Safety Report 9257210 (Version 1)
Quarter: 2013Q1

REPORT INFORMATION
  Report Type: Spontaneous
  Country: US (occurrence: None)
  Receive Date: 20121212
  Receipt Date: 20121212
  Transmission Date: 20140127
  Serious: No
  Sender: FDA-Public Use
  Company Number: 1208USA007970

PATIENT
  Sex: Female

DRUGS (3)
  1. VICTRELIS (BOCEPREVIR) CASPULES [Suspect]
     Indication: HEPATITIS C
     Dosage: UNK
     Dates: end: 20120815
  2. INTERFERON (UNSPECIFIED) [Concomitant]
  3. RIBAVIRIN (RIBAVIRIN) [Concomitant]

REACTIONS (1)
  - Viral load increased [None]
